FAERS Safety Report 16140490 (Version 1)
Quarter: 2019Q2

REPORT INFORMATION
  Report Type: Spontaneous
  Country: US (occurrence: US)
  Receive Date: 20190401
  Receipt Date: 20190401
  Transmission Date: 20190711
  Serious: No
  Sender: FDA-Public Use
  Company Number: US-SEPTODONT-201804919

PATIENT

DRUGS (1)
  1. LIDOCAINE CARTRIDGE 2% W/EPI [Suspect]
     Active Substance: EPINEPHRINE\LIDOCAINE
     Indication: DENTAL LOCAL ANAESTHESIA
     Dosage: PATIENTS WERE ADMINISTERED 1 CARPULE, AFTER NOT NUMBING A SECOND WAS ADMINISTERED.
     Route: 004
     Dates: start: 20181121, end: 20181121

REACTIONS (1)
  - Drug ineffective [Not Recovered/Not Resolved]

NARRATIVE: CASE EVENT DATE: 20181121
